FAERS Safety Report 4726326-X (Version None)
Quarter: 2005Q3

REPORT INFORMATION
  Report Type: 
  Country: None (occurrence: None)
  Receive Date: 20050725
  Receipt Date: 20050718
  Transmission Date: 20060218
  Serious: Yes (Hospitalization, Other)
  Sender: FDA-Public Use
  Company Number: 2005103244

PATIENT
  Age: 76 Year
  Sex: Female
  Weight: 59.8748 kg

DRUGS (10)
  1. LIPITOR [Suspect]
     Indication: BLOOD CHOLESTEROL INCREASED
     Dosage: 10 MG (10 MG, 1 IN 1 D), ORAL
     Route: 048
  2. LANOXIN [Concomitant]
  3. CARDIZEM [Concomitant]
  4. LASIX [Concomitant]
  5. COATED ASPIRIN (ACETYLSALICYLIC ACID) [Concomitant]
  6. LOPRESSOR [Concomitant]
  7. FOSAMAX [Concomitant]
  8. OSCAL (CALCIUM CARBONATE) [Concomitant]
  9. VITAMIN C (VITAMIN C) [Concomitant]
  10. NEXIUM [Concomitant]

REACTIONS (4)
  - DIABETES MELLITUS NON-INSULIN-DEPENDENT [None]
  - GALLBLADDER OPERATION [None]
  - HEPATIC STEATOSIS [None]
  - MALAISE [None]
